FAERS Safety Report 7909918-6 (Version None)
Quarter: 2011Q4

REPORT INFORMATION
  Report Type: 
  Country: None (occurrence: None)
  Receive Date: 20111111
  Receipt Date: 20111107
  Transmission Date: 20120403
  Serious: Yes (Other)
  Sender: FDA-Public Use
  Company Number: JP-ROCHE-552896

PATIENT
  Sex: Female

DRUGS (3)
  1. EPIRUBICIN HYDROCHLORIDE [Suspect]
     Indication: BREAST CANCER
     Dosage: ON DAY 1 OF A 21 DAY CYCLE
     Route: 042
  2. XELODA [Suspect]
     Indication: BREAST CANCER
     Dosage: ON DAYS 1 TO 14 OF A 21 DAY CYCLE
     Route: 048
  3. CYCLOPHOSPHAMIDE [Suspect]
     Indication: BREAST CANCER
     Dosage: ON DAY 1 OF A 21 DAY CYCLE.
     Route: 042

REACTIONS (11)
  - DECREASED APPETITE [None]
  - LEUKOPENIA [None]
  - NEUTROPENIA [None]
  - DIARRHOEA [None]
  - FEBRILE NEUTROPENIA [None]
  - MUCOSAL INFLAMMATION [None]
  - EASTERN COOPERATIVE ONCOLOGY GROUP PERFORMANCE STATUS WORSENED [None]
  - THROMBOCYTOPENIA [None]
  - PALMAR-PLANTAR ERYTHRODYSAESTHESIA SYNDROME [None]
  - NAUSEA [None]
  - INFECTION [None]
